FAERS Safety Report 20920735 (Version 1)
Quarter: 2022Q2

REPORT INFORMATION
  Report Type: Spontaneous
  Country: US (occurrence: US)
  Receive Date: 20220606
  Receipt Date: 20220606
  Transmission Date: 20220720
  Serious: Yes (Other)
  Sender: FDA-Public Use
  Company Number: US-ALLERGAN-2217961US

PATIENT
  Sex: Female

DRUGS (4)
  1. BOTOX [Suspect]
     Active Substance: ONABOTULINUMTOXINA
     Indication: Hypertonic bladder
     Dosage: UNK UNK, SINGLE
     Dates: start: 20220517, end: 20220517
  2. COPAXONE [Concomitant]
     Active Substance: GLATIRAMER ACETATE
     Indication: Multiple sclerosis
     Dosage: 40MG THREE TIMES A WEEK
     Route: 058
  3. ATORVASTATIN [Concomitant]
     Active Substance: ATORVASTATIN
     Indication: Blood cholesterol increased
     Dosage: 40 MG, QD
     Route: 048
  4. LEVOTHYROXINE [Concomitant]
     Active Substance: LEVOTHYROXINE
     Indication: Hypothyroidism
     Dosage: UNK
     Route: 048

REACTIONS (4)
  - Urinary bladder haemorrhage [Recovered/Resolved]
  - Blood urine present [Recovered/Resolved]
  - Dysuria [Recovered/Resolved]
  - Injection site injury [Unknown]

NARRATIVE: CASE EVENT DATE: 20220524
